FAERS Safety Report 7237935-0 (Version None)
Quarter: 2011Q1

REPORT INFORMATION
  Report Type: 
  Country: None (occurrence: None)
  Receive Date: 20110121
  Receipt Date: 20110110
  Transmission Date: 20110831
  Serious: Yes (Other)
  Sender: FDA-Public Use
  Company Number: FR-ELI_LILLY_AND_COMPANY-FR201101003043

PATIENT
  Age: 34 Year
  Sex: Male

DRUGS (1)
  1. ZYPADHERA [Suspect]
     Indication: SCHIZOPHRENIA
     Dosage: 300 MG, UNK
     Route: 030

REACTIONS (6)
  - HALLUCINATION [None]
  - SOMNOLENCE [None]
  - OEDEMA PERIPHERAL [None]
  - AMNESIA [None]
  - MOVEMENT DISORDER [None]
  - FEELING ABNORMAL [None]
